FAERS Safety Report 4957950-7 (Version None)
Quarter: 2006Q1

REPORT INFORMATION
  Report Type: 
  Country: None (occurrence: None)
  Receive Date: 20060330
  Receipt Date: 20050613
  Transmission Date: 20060701
  Serious: Yes (Hospitalization, Disabling)
  Sender: FDA-Public Use
  Company Number: US-MERCK-0506USA02024

PATIENT
  Age: 60 Year
  Sex: Male
  Weight: 105 kg

DRUGS (19)
  1. VIOXX [Suspect]
     Indication: ARTHRALGIA
     Route: 048
     Dates: start: 20030101, end: 20031201
  2. VIOXX [Suspect]
     Indication: INFLAMMATION
     Route: 048
     Dates: start: 20030101, end: 20031201
  3. NEURONTIN [Concomitant]
     Route: 065
  4. LISINOPRIL [Concomitant]
     Route: 065
  5. METFORMIN [Concomitant]
     Route: 065
  6. LIPITOR [Concomitant]
     Route: 065
  7. ACETAMINOPHEN AND PROPOXYPHENE NAPSYLATE [Concomitant]
     Route: 065
  8. PLAVIX [Concomitant]
     Route: 065
  9. GLIPIZIDE [Concomitant]
     Route: 065
  10. TOBRADEX [Concomitant]
     Route: 065
  11. NEXIUM [Concomitant]
     Route: 065
  12. AMITRIPTYLINE HYDROCHLORIDE [Concomitant]
     Route: 065
  13. PLETAL [Concomitant]
     Route: 065
  14. LEXAPRO [Concomitant]
     Route: 065
  15. METOPROLOL [Concomitant]
     Route: 065
  16. DIGITEK [Concomitant]
     Route: 065
  17. AVANDIA [Concomitant]
     Route: 065
  18. TRIMOX [Concomitant]
     Route: 065
  19. AVANDAMET [Concomitant]
     Route: 065

REACTIONS (3)
  - CEREBROVASCULAR ACCIDENT [None]
  - CORONARY ARTERY DISEASE [None]
  - OVERDOSE [None]
